FAERS Safety Report 23456247 (Version 2)
Quarter: 2024Q1

REPORT INFORMATION
  Report Type: Spontaneous
  Country: CA (occurrence: CA)
  Receive Date: 20240130
  Receipt Date: 20240305
  Transmission Date: 20240410
  Serious: Yes (Other)
  Sender: FDA-Public Use
  Company Number: None

PATIENT
  Age: 40 Year
  Sex: Female

DRUGS (8)
  1. PROTOPIC [Suspect]
     Active Substance: TACROLIMUS
     Indication: Asthma
     Route: 003
  2. CODEINE [Concomitant]
     Active Substance: CODEINE
     Indication: Product used for unknown indication
     Route: 048
  3. DYMISTA [Concomitant]
     Active Substance: AZELASTINE HYDROCHLORIDE\FLUTICASONE PROPIONATE
     Indication: Product used for unknown indication
  4. NYSTATIN [Concomitant]
     Active Substance: NYSTATIN
     Indication: Product used for unknown indication
  5. IRBESARTAN [Suspect]
     Active Substance: IRBESARTAN
     Indication: Product used for unknown indication
  6. AMLODIPINE MALEATE [Suspect]
     Active Substance: AMLODIPINE MALEATE
     Indication: Product used for unknown indication
  7. MONTELUKAST SODIUM [Suspect]
     Active Substance: MONTELUKAST SODIUM
     Indication: Product used for unknown indication
  8. TRIAMCINOLONE ACETONIDE [Concomitant]
     Active Substance: TRIAMCINOLONE ACETONIDE
     Indication: Product used for unknown indication
     Route: 003

REACTIONS (7)
  - Mean platelet volume decreased [Unknown]
  - Seasonal allergy [Unknown]
  - Blood immunoglobulin E increased [Unknown]
  - Cushing^s syndrome [Unknown]
  - Platelet count increased [Unknown]
  - Product use in unapproved indication [Unknown]
  - Drug ineffective [Unknown]
